FAERS Safety Report 7811515-8 (Version None)
Quarter: 2011Q4

REPORT INFORMATION
  Report Type: 
  Country: None (occurrence: None)
  Receive Date: 20111013
  Receipt Date: 20111013
  Transmission Date: 20120403
  Serious: Yes (Other)
  Sender: FDA-Public Use
  Company Number: None

PATIENT
  Sex: Female
  Weight: 84.7 kg

DRUGS (1)
  1. VISIPAQUE 320 [Suspect]
     Indication: COMPUTERISED TOMOGRAM
     Dosage: 320 ML
     Route: 048

REACTIONS (3)
  - PRURITUS [None]
  - URTICARIA [None]
  - CONTRAST MEDIA REACTION [None]
